FAERS Safety Report 9357179 (Version 2)
Quarter: 2013Q3

REPORT INFORMATION
  Report Type: Spontaneous
  Country: SE (occurrence: SE)
  Receive Date: 20130620
  Receipt Date: 20130822
  Transmission Date: 20140515
  Serious: Yes (Other)
  Sender: FDA-Public Use
  Company Number: SE-JNJFOC-20130608521

PATIENT
  Sex: Female
  Weight: 30 kg

DRUGS (1)
  1. BEDAQUILINE [Suspect]
     Indication: TUBERCULOSIS
     Route: 048

REACTIONS (2)
  - Hypertension [Recovered/Resolved]
  - Tachycardia [Unknown]
